FAERS Safety Report 7462025-1 (Version None)
Quarter: 2011Q2

REPORT INFORMATION
  Report Type: 
  Country: None (occurrence: None)
  Receive Date: 20110506
  Receipt Date: 20110429
  Transmission Date: 20111010
  Serious: Yes (Other)
  Sender: FDA-Public Use
  Company Number: US-SANOFI-AVENTIS-2011SA027093

PATIENT
  Age: 47 Year
  Sex: Male

DRUGS (3)
  1. ZYRTEC [Concomitant]
     Dates: end: 20110101
  2. ALLEGRA [Suspect]
     Route: 048
     Dates: start: 20110429, end: 20110429
  3. PROZAC [Concomitant]

REACTIONS (2)
  - HEADACHE [None]
  - HYPERTENSION [None]
